FAERS Safety Report 7312318-3 (Version None)
Quarter: 2011Q1

REPORT INFORMATION
  Report Type: 
  Country: None (occurrence: None)
  Receive Date: 20110224
  Receipt Date: 20110221
  Transmission Date: 20110831
  Serious: Yes (Life-Threatening)
  Sender: FDA-Public Use
  Company Number: B0701966A

PATIENT
  Sex: Female

DRUGS (1)
  1. AUGMENTIN '125' [Suspect]
     Indication: TOOTHACHE
     Route: 048
     Dates: start: 20110210, end: 20110210

REACTIONS (4)
  - RESPIRATORY DISTRESS [None]
  - RASH [None]
  - LARYNGEAL OEDEMA [None]
  - DEPRESSED LEVEL OF CONSCIOUSNESS [None]
